FAERS Safety Report 5970255-0 (Version None)
Quarter: 2008Q4

REPORT INFORMATION
  Report Type: 
  Country: None (occurrence: None)
  Receive Date: 20081126
  Receipt Date: 20081015
  Transmission Date: 20090506
  Serious: No
  Sender: FDA-Public Use
  Company Number: US-ABBOTT-08P-163-0482687-00

PATIENT
  Sex: Female

DRUGS (2)
  1. SIMCOR [Suspect]
     Indication: BLOOD CHOLESTEROL INCREASED
     Dosage: 500MG/20MG, AT BEDTIME
     Route: 048
     Dates: start: 20081001
  2. ACETYLSALICYLIC ACID SRT [Concomitant]
     Indication: DRUG USE FOR UNKNOWN INDICATION
     Route: 048

REACTIONS (7)
  - DRY SKIN [None]
  - FEELING HOT [None]
  - FLUSHING [None]
  - FORMICATION [None]
  - HOT FLUSH [None]
  - MUSCLE TWITCHING [None]
  - PALPITATIONS [None]
